FAERS Safety Report 17561941 (Version 2)
Quarter: 2020Q2

REPORT INFORMATION
  Report Type: Spontaneous
  Country: DE (occurrence: DE)
  Receive Date: 20200319
  Receipt Date: 20200529
  Transmission Date: 20200713
  Serious: Yes (Hospitalization)
  Sender: FDA-Public Use
  Company Number: DE-TEVA-2020-DE-1204310

PATIENT
  Age: 64 Year
  Sex: Female
  Weight: 65.2 kg

DRUGS (7)
  1. NOVAMINSULFON 500MG 1A PHARMA [Concomitant]
  2. TRAMAL LONG 50 MG [Concomitant]
     Active Substance: TRAMADOL
     Dosage: 100 MILLIGRAM DAILY; DAILY DOSE: 100 MG MILLGRAM(S) EVERY DAYS 2 SEPARATED DOSES
     Route: 048
     Dates: start: 20191017
  3. BISOPROLOL 1A PHARMA [Concomitant]
     Active Substance: BISOPROLOL
     Dosage: 2.5 MILLIGRAM DAILY; DAILY DOSE: 2.5 MG MILLGRAM(S) EVERY DAYS
     Route: 048
  4. ROSUVASTATIN. [Suspect]
     Active Substance: ROSUVASTATIN
     Indication: HYPERCHOLESTEROLAEMIA
     Dosage: 10 MILLIGRAM DAILY; DAILY DOSE: 10 MG MILLGRAM(S) EVERY DAYS
     Route: 048
     Dates: start: 20190923, end: 20191028
  5. KREON 10.000 KMP [Concomitant]
     Dosage: 1-1-2-2
     Dates: start: 20191016
  6. CANDESARTAN 1A PHARMA [Concomitant]
     Active Substance: CANDESARTAN CILEXETIL
     Dosage: 8 MILLIGRAM DAILY; DAILY DOSE: 8 MG MILLGRAM(S) EVERY DAYS
     Route: 048
  7. PANTOZOL [Suspect]
     Active Substance: PANTOPRAZOLE SODIUM
     Dosage: 40 MILLIGRAM DAILY; DAILY DOSE: 40 MG MILLGRAM(S) EVERY DAYS
     Route: 048
     Dates: start: 201910

REACTIONS (1)
  - Drug-induced liver injury [Recovered/Resolved]

NARRATIVE: CASE EVENT DATE: 201910
